FAERS Safety Report 5744491-2 (Version None)
Quarter: 2008Q2

REPORT INFORMATION
  Report Type: 
  Country: None (occurrence: None)
  Receive Date: 20080516
  Receipt Date: 20080509
  Transmission Date: 20081010
  Serious: Yes (Hospitalization, Other)
  Sender: FDA-Public Use
  Company Number: 2007SP004255

PATIENT
  Age: 45 Year
  Sex: Female

DRUGS (9)
  1. PEG-INTRON [Suspect]
     Indication: HEPATITIS C
     Dosage: SC
     Route: 058
     Dates: start: 20060320, end: 20060403
  2. RIBASPHERE [Suspect]
     Indication: HEPATITIS C
     Dosage: PO
     Route: 048
     Dates: start: 20060320, end: 20060403
  3. CYMBALTA [Concomitant]
  4. KLONOPIN [Concomitant]
  5. ACETAMINOPHEN AND OXYCODONE HCL [Concomitant]
  6. OXYCONTIN [Concomitant]
  7. RESTORIL [Concomitant]
  8. SOMA [Concomitant]
  9. ZOLOFT [Concomitant]

REACTIONS (12)
  - ANGER [None]
  - CONVULSION [None]
  - DRUG DEPENDENCE [None]
  - FRACTURE [None]
  - GUILLAIN-BARRE SYNDROME [None]
  - INFECTED CYST [None]
  - MEMORY IMPAIRMENT [None]
  - MYOCARDIAL INFARCTION [None]
  - OVARIAN CYST [None]
  - PAIN [None]
  - TREATMENT NONCOMPLIANCE [None]
  - UNRESPONSIVE TO STIMULI [None]
